FAERS Safety Report 5223603-3 (Version None)
Quarter: 2007Q1

REPORT INFORMATION
  Report Type: 
  Country: None (occurrence: None)
  Receive Date: 20070125
  Receipt Date: 20061220
  Transmission Date: 20070707
  Serious: Yes (Other)
  Sender: FDA-Public Use
  Company Number: 2006SP005230

PATIENT
  Sex: 0

DRUGS (6)
  1. EPTIFIBATIDE (S-P) (EPTIFIBATIDE) [Suspect]
     Indication: ANGINA UNSTABLE
  2. EPTIFIBATIDE (S-P) (EPTIFIBATIDE) [Suspect]
     Indication: MYOCARDIAL INFARCTION
  3. EPTIFIBATIDE (S-P) (EPTIFIBATIDE) [Suspect]
     Indication: STENT PLACEMENT
  4. AAS [Concomitant]
  5. HEPARIN [Concomitant]
  6. PLAVIX [Concomitant]

REACTIONS (6)
  - CARDIAC TAMPONADE [None]
  - EPISTAXIS [None]
  - GINGIVAL BLEEDING [None]
  - HAEMATURIA [None]
  - HAEMOTHORAX [None]
  - RECTAL HAEMORRHAGE [None]
